FAERS Safety Report 6642132-3 (Version None)
Quarter: 2010Q1

REPORT INFORMATION
  Report Type: 
  Country: None (occurrence: None)
  Receive Date: 20100319
  Receipt Date: 20100309
  Transmission Date: 20100710
  Serious: Yes (Hospitalization)
  Sender: FDA-Public Use
  Company Number: US-ALEXION-A201000243

PATIENT
  Sex: Male

DRUGS (8)
  1. SOLIRIS [Suspect]
     Indication: PAROXYSMAL NOCTURNAL HAEMOGLOBINURIA
     Dosage: 600 MG, QW
     Route: 042
     Dates: start: 20071031, end: 20071114
  2. SOLIRIS [Suspect]
     Dosage: 900 MG, Q2W
     Dates: start: 20071121
  3. CORDARONE [Concomitant]
     Dosage: 200 MG, QD
     Route: 048
  4. DIGOXIN [Concomitant]
     Dosage: 125 MCG
     Route: 048
  5. FOLIC ACID [Concomitant]
     Dosage: 1 MG, QD
     Route: 048
  6. LEVAQUIN [Concomitant]
     Dosage: 500 MG, QD
     Route: 048
  7. MOBIC [Concomitant]
     Dosage: UNK
     Route: 048
  8. SYNTHROID [Concomitant]
     Route: 048

REACTIONS (11)
  - ALANINE AMINOTRANSFERASE INCREASED [None]
  - ASPARTATE AMINOTRANSFERASE INCREASED [None]
  - BLOOD BILIRUBIN INCREASED [None]
  - FAILURE TO THRIVE [None]
  - GASTROENTERITIS VIRAL [None]
  - HAEMOLYSIS [None]
  - INFLUENZA LIKE ILLNESS [None]
  - PLATELET COUNT INCREASED [None]
  - RENAL FAILURE [None]
  - UPPER RESPIRATORY TRACT INFECTION [None]
  - VOMITING [None]
